FAERS Safety Report 11359399 (Version 1)
Quarter: 2015Q3

REPORT INFORMATION
  Report Type: Spontaneous
  Country: BR (occurrence: BR)
  Receive Date: 20150807
  Receipt Date: 20150807
  Transmission Date: 20151125
  Serious: Yes (Hospitalization, Other)
  Sender: FDA-Public Use
  Company Number: PHHY2015BR094483

PATIENT
  Age: 58 Year
  Sex: Female
  Weight: 80 kg

DRUGS (3)
  1. CARBAMAZEPINE. [Suspect]
     Active Substance: CARBAMAZEPINE
     Indication: PRODUCT USED FOR UNKNOWN INDICATION
     Dosage: UNK
     Route: 065
  2. TEGRETOL [Suspect]
     Active Substance: CARBAMAZEPINE
     Indication: EPILEPSY
     Dosage: 400 MG, TID
     Route: 048
  3. TEGRETOL [Suspect]
     Active Substance: CARBAMAZEPINE
     Dosage: 200 MG, TID
     Route: 048

REACTIONS (10)
  - Vasodilatation [Unknown]
  - Cardiovascular disorder [Unknown]
  - Cerebral thrombosis [Recovered/Resolved]
  - Seizure [Recovered/Resolved]
  - Epilepsy [Recovered/Resolved]
  - Drug intolerance [Unknown]
  - Nervousness [Unknown]
  - Fear [Unknown]
  - Petit mal epilepsy [Recovered/Resolved]
  - Hypoxia [Unknown]
